FAERS Safety Report 11252287 (Version 1)
Quarter: 2015Q3

REPORT INFORMATION
  Report Type: Spontaneous
  Country: US (occurrence: US)
  Receive Date: 20150708
  Receipt Date: 20150708
  Transmission Date: 20151125
  Serious: Yes (Other)
  Sender: FDA-Public Use
  Company Number: US-ELI_LILLY_AND_COMPANY-US201310001580

PATIENT
  Sex: Female

DRUGS (4)
  1. ALIMTA [Suspect]
     Active Substance: PEMETREXED DISODIUM
     Indication: LUNG NEOPLASM MALIGNANT
     Dosage: 750 MG, CYCLICAL
     Dates: start: 20130622
  2. CARBOPLATIN. [Concomitant]
     Active Substance: CARBOPLATIN
     Dosage: 300 MG, CYCLICAL
     Route: 065
     Dates: start: 20130622
  3. ALIMTA [Suspect]
     Active Substance: PEMETREXED DISODIUM
     Dosage: 830 MG, CYCLICAL
     Dates: end: 20130909
  4. CARBOPLATIN. [Concomitant]
     Active Substance: CARBOPLATIN
     Dosage: 459 MG, CYCLICAL
     Route: 065
     Dates: end: 20130909

REACTIONS (2)
  - Malignant neoplasm progression [Unknown]
  - Dry eye [Unknown]
